FAERS Safety Report 12106174 (Version 10)
Quarter: 2017Q4

REPORT INFORMATION
  Report Type: Spontaneous
  Country: BR (occurrence: BR)
  Receive Date: 20160223
  Receipt Date: 20171113
  Transmission Date: 20180320
  Serious: Yes (Other)
  Sender: FDA-Public Use
  Company Number: BR-JNJFOC-20160218383

PATIENT
  Age: 56 Year
  Sex: Female
  Weight: 95 kg

DRUGS (4)
  1. APROVEL [Concomitant]
     Active Substance: IRBESARTAN
     Route: 065
  2. ALPRAZOLAM. [Concomitant]
     Active Substance: ALPRAZOLAM
     Route: 065
  3. ATENOLOL. [Concomitant]
     Active Substance: ATENOLOL
     Route: 065
  4. SIMPONI [Suspect]
     Active Substance: GOLIMUMAB
     Indication: RHEUMATOID ARTHRITIS
     Route: 058
     Dates: start: 20151130

REACTIONS (6)
  - Inappropriate schedule of drug administration [Unknown]
  - Rheumatoid arthritis [Recovered/Resolved]
  - Immune system disorder [Unknown]
  - Arthropathy [Unknown]
  - Drug ineffective [Unknown]
  - Product supply issue [Unknown]

NARRATIVE: CASE EVENT DATE: 201710
